FAERS Safety Report 11381657 (Version 1)
Quarter: 2015Q3

REPORT INFORMATION
  Report Type: Spontaneous
  Country: US (occurrence: US)
  Receive Date: 20150814
  Receipt Date: 20150814
  Transmission Date: 20151125
  Serious: No
  Sender: FDA-Public Use
  Company Number: US-GALDERMA-US14003893

PATIENT
  Sex: Female

DRUGS (1)
  1. ADAPALENE GEL, 0.3% [Suspect]
     Active Substance: ADAPALENE
     Dosage: 0.3%
     Route: 061

REACTIONS (1)
  - Drug ineffective [Unknown]
